FAERS Safety Report 8243256-X (Version None)
Quarter: 2012Q1

REPORT INFORMATION
  Report Type: 
  Country: None (occurrence: None)
  Receive Date: 20120329
  Receipt Date: 20120307
  Transmission Date: 20120608
  Serious: Yes (Other)
  Sender: FDA-Public Use
  Company Number: US-ROCHE-1010980

PATIENT
  Sex: Female
  Weight: 59.02 kg

DRUGS (4)
  1. DIGOXIN [Concomitant]
  2. RANIBIZUMAB [Suspect]
     Indication: AGE-RELATED MACULAR DEGENERATION
     Route: 050
  3. COUMADIN [Concomitant]
  4. CARTIA (UNITED STATES) [Concomitant]

REACTIONS (1)
  - BLINDNESS [None]
